FAERS Safety Report 7797474-5 (Version None)
Quarter: 2011Q4

REPORT INFORMATION
  Report Type: 
  Country: None (occurrence: None)
  Receive Date: 20111005
  Receipt Date: 20110927
  Transmission Date: 20120403
  Serious: Yes (Hospitalization)
  Sender: FDA-Public Use
  Company Number: AU-AMGEN-AUSSP2011030277

PATIENT
  Age: 79 Year
  Sex: Female

DRUGS (7)
  1. CHOLECALCIFEROL [Concomitant]
  2. PROLIA [Suspect]
     Indication: OSTEOPOROSIS POSTMENOPAUSAL
     Dosage: 60 MG, UNK
     Route: 058
     Dates: start: 20110305
  3. GEMFIBROZIL [Concomitant]
  4. OMEPRAZOLE [Concomitant]
  5. ALLOPURINOL [Concomitant]
  6. ATENOLOL [Concomitant]
  7. NICORANDIL [Concomitant]

REACTIONS (9)
  - SECRETION DISCHARGE [None]
  - ULCER [None]
  - OEDEMA PERIPHERAL [None]
  - HAEMORRHAGE [None]
  - ALOPECIA [None]
  - SKIN EXFOLIATION [None]
  - PRURITUS [None]
  - VASCULITIS [None]
  - ERYTHEMA [None]
